FAERS Safety Report 5454603-6 (Version None)
Quarter: 2007Q3

REPORT INFORMATION
  Report Type: 
  Country: None (occurrence: None)
  Receive Date: 20070917
  Receipt Date: 20070330
  Transmission Date: 20080115
  Serious: Yes (Other)
  Sender: FDA-Public Use
  Company Number: US-ASTRAZENECA-2006UW11705

PATIENT
  Sex: Female
  Weight: 77.7 kg

DRUGS (5)
  1. SEROQUEL [Suspect]
     Indication: MENTAL DISORDER
     Dosage: 25MG, 100MG
     Route: 048
     Dates: end: 20060101
  2. ABILIFY [Concomitant]
  3. GEODON [Concomitant]
     Dates: start: 20050101, end: 20060101
  4. RISPERDAL [Concomitant]
     Dates: start: 20050101
  5. ZYPREXA [Concomitant]
     Dates: start: 20040101, end: 20060101

REACTIONS (2)
  - DIABETES MELLITUS [None]
  - PANCREATITIS [None]
